FAERS Safety Report 7311009-2 (Version None)
Quarter: 2011Q1

REPORT INFORMATION
  Report Type: 
  Country: None (occurrence: None)
  Receive Date: 20110224
  Receipt Date: 20110216
  Transmission Date: 20110831
  Serious: Yes (Death, Other)
  Sender: FDA-Public Use
  Company Number: PHEH2006US15105

PATIENT
  Sex: Male
  Weight: 96.145 kg

DRUGS (53)
  1. ZOMETA [Suspect]
     Indication: METASTASES TO BONE
  2. ACETAMINOPHEN [Concomitant]
  3. PENICILLIN VK [Concomitant]
  4. FENTANYL-100 [Concomitant]
  5. ALOXI [Concomitant]
     Indication: NAUSEA
  6. PEPCID [Concomitant]
  7. TAXOTERE [Concomitant]
     Indication: PROSTATE CANCER
     Dosage: 30 MG/M2, WEEKLY FOR THREE TO FOUR WEEKS
  8. LOVENOX [Concomitant]
     Dosage: 60 MG, QD
  9. DULCOLAX [Concomitant]
  10. METHADONE [Concomitant]
  11. MODAFINIL [Concomitant]
  12. AMINOGLUTETHIMIDE [Concomitant]
  13. MEGACE [Concomitant]
     Dosage: 40 CC, QD
     Route: 048
  14. ZYPREXA [Concomitant]
     Dosage: 2.5 MG, QD
  15. LORAZEPAM [Concomitant]
  16. HYOSCYAMINE [Concomitant]
  17. TRAMADOL HCL [Concomitant]
  18. OMEPRAZOLE [Concomitant]
  19. OXYGEN [Concomitant]
  20. DEXAMETHASONE [Concomitant]
     Dosage: 4 MG, QW2
  21. CALCITRIOL [Concomitant]
  22. MELLARIL [Concomitant]
  23. VIVELLE [Concomitant]
     Route: 062
  24. KETOCONAZOLE [Concomitant]
     Indication: PROSTATE CANCER
  25. VIAGRA [Concomitant]
     Dosage: UNK, AS NEEDED
  26. HALOPERIDOL [Concomitant]
  27. CHLORHEXIDINE GLUCONATE [Concomitant]
  28. ARANESP [Concomitant]
  29. PRILOSEC [Concomitant]
  30. ATIVAN [Concomitant]
  31. PROSCAR [Concomitant]
  32. LYRICA [Concomitant]
  33. PREDNISONE [Concomitant]
     Dosage: 5 MG, BID
  34. MS CONTIN [Concomitant]
  35. IBUPROFEN [Concomitant]
     Dosage: 1800 MG, QD
  36. LUPRON [Concomitant]
  37. OXYCODONE [Concomitant]
  38. CARBOPLATIN [Concomitant]
  39. EMCYT [Concomitant]
  40. LEUKINE [Concomitant]
  41. HYDROCODONE [Concomitant]
  42. ZOMETA [Suspect]
     Indication: PROSTATE CANCER
     Dosage: 4 MG, QMO
     Dates: start: 20041004
  43. ZANTAC [Concomitant]
     Dosage: 150 MG, QD
     Route: 048
  44. EFFEXOR [Concomitant]
     Dosage: 1 DF, QD
  45. HYDROCORTISONE [Concomitant]
  46. CYTOXAN [Concomitant]
  47. EMEND [Concomitant]
  48. AMBIEN [Concomitant]
  49. PAXIL [Concomitant]
     Dosage: 60 MG, QD
  50. HYDROMORPHONE [Concomitant]
     Dosage: UNK, AS NEEDED
  51. COLACE [Concomitant]
  52. PROCHLORPERAZINE [Concomitant]
  53. PERIOGARD [Concomitant]

REACTIONS (34)
  - BLOOD OESTROGEN INCREASED [None]
  - DEPRESSION [None]
  - GENERAL PHYSICAL HEALTH DETERIORATION [None]
  - DECREASED INTEREST [None]
  - TENDERNESS [None]
  - PROSTATIC SPECIFIC ANTIGEN INCREASED [None]
  - OSTEOARTHRITIS [None]
  - ANAEMIA [None]
  - DEATH [None]
  - GINGIVAL DISORDER [None]
  - IMPAIRED HEALING [None]
  - ARTHRALGIA [None]
  - SOMNOLENCE [None]
  - MITRAL VALVE INCOMPETENCE [None]
  - HALLUCINATION, VISUAL [None]
  - PAIN [None]
  - MYALGIA [None]
  - JAW DISORDER [None]
  - ANXIETY [None]
  - TOOTH DISORDER [None]
  - METASTASES TO BONE [None]
  - PAIN IN JAW [None]
  - ORAL PAIN [None]
  - OSTEOSCLEROSIS [None]
  - CONSTIPATION [None]
  - BONE DISORDER [None]
  - TOOTH INFECTION [None]
  - GASTROOESOPHAGEAL REFLUX DISEASE [None]
  - NARCOLEPSY [None]
  - HYPOAESTHESIA [None]
  - TOOTHACHE [None]
  - OSTEONECROSIS OF JAW [None]
  - EMOTIONAL DISTRESS [None]
  - NEOPLASM MALIGNANT [None]
